FAERS Safety Report 9485068 (Version 2)
Quarter: 2013Q3

REPORT INFORMATION
  Report Type: Spontaneous
  Country: US (occurrence: US)
  Receive Date: 20130828
  Receipt Date: 20130828
  Transmission Date: 20140515
  Serious: No
  Sender: FDA-Public Use
  Company Number: US-ABBOTT-13P-163-1125866-00

PATIENT
  Age: 73 Year
  Sex: Male
  Weight: 89.89 kg

DRUGS (2)
  1. ANDROGEL [Suspect]
     Indication: BLOOD TESTOSTERONE DECREASED
     Route: 062
     Dates: start: 201306
  2. LIPITOR [Concomitant]
     Indication: BLOOD CHOLESTEROL ABNORMAL

REACTIONS (2)
  - Drug ineffective [Not Recovered/Not Resolved]
  - Fatigue [Not Recovered/Not Resolved]
